FAERS Safety Report 20825016 (Version 9)
Quarter: 2022Q4

REPORT INFORMATION
  Report Type: Spontaneous
  Country: CO (occurrence: CO)
  Receive Date: 20220513
  Receipt Date: 20221014
  Transmission Date: 20230113
  Serious: No
  Sender: FDA-Public Use
  Company Number: CO-PFIZER INC-202200687375

PATIENT
  Age: 8 Year
  Sex: Female

DRUGS (1)
  1. GENOTROPIN [Suspect]
     Active Substance: SOMATROPIN
     Dosage: 1.2 MG, 1X/DAY (EVERY NIGHT)
     Route: 058
     Dates: start: 202201

REACTIONS (10)
  - Drug dose omission by device [Unknown]
  - Incorrect dose administered by device [Unknown]
  - Wrong technique in device usage process [Unknown]
  - Accidental exposure to product [Unknown]
  - Poor quality device used [Unknown]
  - Incorrect dose administered [Unknown]
  - Device power source issue [Unknown]
  - Device failure [Unknown]
  - Device information output issue [Unknown]
  - Device leakage [Unknown]

NARRATIVE: CASE EVENT DATE: 20220505
